FAERS Safety Report 13247443 (Version 3)
Quarter: 2017Q4

REPORT INFORMATION
  Report Type: Spontaneous
  Country: IL (occurrence: ES)
  Receive Date: 20170217
  Receipt Date: 20171012
  Transmission Date: 20180320
  Serious: Yes (Death)
  Sender: FDA-Public Use
  Company Number: IL-ALLERGAN-1705846US

PATIENT
  Age: 61 Year
  Sex: Female

DRUGS (1)
  1. CEFTAZIDIME;AVIBACTAM UNK [Suspect]
     Active Substance: AVIBACTAM SODIUM\CEFTAZIDIME
     Indication: PATHOGEN RESISTANCE
     Dosage: UNK
     Route: 065
     Dates: start: 20140919

REACTIONS (2)
  - Drug ineffective [Unknown]
  - Treatment failure [Fatal]
